FAERS Safety Report 9949063 (Version 2)
Quarter: 2014Q1

REPORT INFORMATION
  Report Type: Report from Study
  Country: US (occurrence: US)
  Receive Date: 20140304
  Receipt Date: 20140310
  Transmission Date: 20141002
  Serious: Yes (Other)
  Sender: FDA-Public Use
  Company Number: US-ROCHE-1358515

PATIENT
  Sex: Male
  Weight: 104.87 kg

DRUGS (1)
  1. AVASTIN [Suspect]
     Indication: COLORECTAL CANCER METASTATIC
     Dosage: 2 MONTHS AGO
     Route: 042

REACTIONS (1)
  - Hepatic neoplasm [Not Recovered/Not Resolved]
